FAERS Safety Report 9990863 (Version 1)
Quarter: 2014Q1

REPORT INFORMATION
  Report Type: Spontaneous
  Country: US (occurrence: None)
  Receive Date: 20140307
  Receipt Date: 20140307
  Transmission Date: 20141002
  Serious: Yes (Hospitalization)
  Sender: FDA-Public Use
  Company Number: None

PATIENT
  Age: 59 Year
  Sex: Male
  Weight: 80.7 kg

DRUGS (2)
  1. CLOZAPINE [Suspect]
     Indication: SCHIZOPHRENIA
     Route: 048
  2. SERTRALINE 200MG [Suspect]
     Indication: DEPRESSION
     Route: 048

REACTIONS (4)
  - Hypotension [None]
  - Mental status changes [None]
  - Blood creatine phosphokinase increased [None]
  - Myoglobin blood increased [None]
